FAERS Safety Report 9124784 (Version 1)
Quarter: 2013Q1

REPORT INFORMATION
  Report Type: Report from Study
  Country: US (occurrence: US)
  Receive Date: 20130121
  Receipt Date: 20130121
  Transmission Date: 20140127
  Serious: Yes (Other)
  Sender: FDA-Public Use
  Company Number: US-ABBOTT-13P-163-1035325-00

PATIENT
  Sex: Male
  Weight: 149.82 kg

DRUGS (16)
  1. NIASPAN (COATED) [Suspect]
     Indication: BLOOD CHOLESTEROL INCREASED
     Dosage: AT BEDTIME, 1 TABLET
     Dates: start: 2009
  2. NIASPAN (COATED) [Suspect]
     Indication: CARDIAC DISORDER
     Dosage: DOSE INCREASED TO 2 TABS
  3. NIASPAN (COATED) [Suspect]
     Dosage: DECREASED BACK TO 1 TAB
  4. ALEVE [Suspect]
     Indication: BACK PAIN
  5. PLAVIX [Suspect]
     Indication: PRODUCT USED FOR UNKNOWN INDICATION
  6. ECOTRIN [Concomitant]
     Indication: PRODUCT USED FOR UNKNOWN INDICATION
  7. LORTAB [Concomitant]
     Indication: PRODUCT USED FOR UNKNOWN INDICATION
  8. OMEPRAZOLE [Concomitant]
     Indication: PRODUCT USED FOR UNKNOWN INDICATION
  9. LOPRESSOR [Concomitant]
     Indication: PRODUCT USED FOR UNKNOWN INDICATION
  10. CARAFATE [Concomitant]
     Indication: PRODUCT USED FOR UNKNOWN INDICATION
  11. TRICOR [Concomitant]
     Indication: PRODUCT USED FOR UNKNOWN INDICATION
  12. VYTORIN [Concomitant]
     Indication: PRODUCT USED FOR UNKNOWN INDICATION
  13. RANEXA [Concomitant]
     Indication: PRODUCT USED FOR UNKNOWN INDICATION
  14. FISH OIL [Concomitant]
     Indication: PRODUCT USED FOR UNKNOWN INDICATION
  15. MULTIVITAMIN [Concomitant]
     Indication: PRODUCT USED FOR UNKNOWN INDICATION
  16. METFORMIN [Concomitant]
     Indication: PRODUCT USED FOR UNKNOWN INDICATION

REACTIONS (5)
  - Stent placement [Recovered/Resolved]
  - Gastrointestinal haemorrhage [Recovered/Resolved]
  - Flushing [Not Recovered/Not Resolved]
  - Skin burning sensation [Not Recovered/Not Resolved]
  - Pain of skin [Not Recovered/Not Resolved]
